FAERS Safety Report 17762005 (Version 1)
Quarter: 2020Q2

REPORT INFORMATION
  Report Type: Spontaneous
  Country: US (occurrence: US)
  Receive Date: 20200508
  Receipt Date: 20200508
  Transmission Date: 20200714
  Serious: Yes (Hospitalization, Other)
  Sender: FDA-Public Use
  Company Number: US-PURDUE PHARMA-USA-2020-0152095

PATIENT

DRUGS (1)
  1. OXYCONTIN [Suspect]
     Active Substance: OXYCODONE HYDROCHLORIDE
     Indication: INJURY
     Dosage: UNK
     Route: 048

REACTIONS (13)
  - Fall [Unknown]
  - Irritability [Unknown]
  - Loss of consciousness [Unknown]
  - Tooth loss [Unknown]
  - Drug dependence [Unknown]
  - Soliloquy [Unknown]
  - Malaise [Unknown]
  - Road traffic accident [Unknown]
  - Amnesia [Unknown]
  - Repetitive speech [Unknown]
  - Insomnia [Unknown]
  - Memory impairment [Unknown]
  - Fine motor skill dysfunction [Unknown]
